FAERS Safety Report 18679738 (Version 1)
Quarter: 2020Q4

REPORT INFORMATION
  Report Type: Other
  Country: FR (occurrence: FR)
  Receive Date: 20201230
  Receipt Date: 20201230
  Transmission Date: 20210114
  Serious: Yes (Hospitalization)
  Sender: FDA-Public Use
  Company Number: FR-CADILA HEALTHCARE LIMITED-FR-ZYDUS-059877

PATIENT

DRUGS (3)
  1. TRAMADOL. [Suspect]
     Active Substance: TRAMADOL
     Indication: PRODUCT USED FOR UNKNOWN INDICATION
     Dosage: UNK
     Route: 048
  2. ACTISKENAN [Suspect]
     Active Substance: MORPHINE SULFATE
     Indication: SCIATICA
     Dosage: 20 MILLIGRAM
     Route: 048
     Dates: start: 20201120, end: 20201121
  3. SKENAN [Suspect]
     Active Substance: MORPHINE SULFATE
     Indication: SCIATICA
     Dosage: 2 DOSAGE FORM
     Route: 048
     Dates: start: 20201120, end: 20201121

REACTIONS (2)
  - Oxygen saturation decreased [Recovered/Resolved]
  - Coma [Recovered/Resolved]

NARRATIVE: CASE EVENT DATE: 20201121
